FAERS Safety Report 5101509-8 (Version None)
Quarter: 2006Q3

REPORT INFORMATION
  Report Type: 
  Country: None (occurrence: None)
  Receive Date: 20060906
  Receipt Date: 20060823
  Transmission Date: 20061208
  Serious: Yes (Other)
  Sender: FDA-Public Use
  Company Number: 2006103880

PATIENT
  Age: 61 Year
  Sex: Male

DRUGS (1)
  1. SOLU-CORTEF [Suspect]
     Indication: URTICARIA CHRONIC
     Dosage: 1300 MG, INTRAVENOUS
     Dates: start: 20050801, end: 20050803

REACTIONS (4)
  - BLOOD GLUCOSE INCREASED [None]
  - DEPRESSED LEVEL OF CONSCIOUSNESS [None]
  - KETOACIDOSIS [None]
  - PANCREATITIS [None]
